FAERS Safety Report 5329046-6 (Version None)
Quarter: 2007Q2

REPORT INFORMATION
  Report Type: 
  Country: None (occurrence: None)
  Receive Date: 20070518
  Receipt Date: 20070509
  Transmission Date: 20071010
  Serious: Yes (Death, Other)
  Sender: FDA-Public Use
  Company Number: US-PFIZER INC-2005107341

PATIENT
  Sex: Male
  Weight: 105.7 kg

DRUGS (12)
  1. NEURONTIN [Suspect]
     Indication: BIPOLAR DISORDER
     Route: 048
  2. SEROQUEL [Suspect]
     Indication: ILL-DEFINED DISORDER
     Dosage: DAILY DOSE:500MG
     Route: 048
  3. XANAX [Concomitant]
     Route: 048
  4. KLONOPIN [Concomitant]
     Route: 048
  5. PAMELOR [Concomitant]
     Route: 048
  6. ZOLOFT [Concomitant]
     Route: 048
  7. LITHOBID [Concomitant]
     Route: 048
  8. NAVANE [Concomitant]
     Route: 048
  9. COGENTIN [Concomitant]
     Route: 048
  10. HALDOL [Concomitant]
     Route: 048
  11. RISPERDAL [Concomitant]
  12. DEPAKOTE [Concomitant]

REACTIONS (3)
  - COMPLETED SUICIDE [None]
  - DRUG INEFFECTIVE [None]
  - OVERDOSE [None]
